FAERS Safety Report 5411483-2 (Version None)
Quarter: 2007Q3

REPORT INFORMATION
  Report Type: 
  Country: None (occurrence: None)
  Receive Date: 20070810
  Receipt Date: 20070802
  Transmission Date: 20080115
  Serious: Yes (Other)
  Sender: FDA-Public Use
  Company Number: SE-SHR-SE-2006-036743

PATIENT
  Sex: Female

DRUGS (1)
  1. YASMIN [Suspect]
     Dosage: 1 TAB(S), 21D/28D
     Route: 048
     Dates: start: 20050401

REACTIONS (3)
  - HEPATIC STEATOSIS [None]
  - HEPATITIS [None]
  - INFLAMMATORY BOWEL DISEASE [None]
